FAERS Safety Report 9003171 (Version 1)
Quarter: 2013Q1

REPORT INFORMATION
  Report Type: Spontaneous
  Country: US (occurrence: US)
  Receive Date: 20130108
  Receipt Date: 20130108
  Transmission Date: 20140127
  Serious: Yes (Other)
  Sender: FDA-Public Use
  Company Number: US-009507513-1301USA002008

PATIENT
  Age: 51 Year
  Sex: Female

DRUGS (6)
  1. SINGULAIR [Suspect]
  2. PROAIR HFA [Suspect]
  3. XOPENEX [Suspect]
  4. FLOVENT [Suspect]
  5. ASMANEX TWISTHALER [Concomitant]
  6. CLARITIN [Concomitant]

REACTIONS (4)
  - Drug intolerance [Unknown]
  - Drug ineffective [Unknown]
  - Cough [Unknown]
  - Asthma [Unknown]
